FAERS Safety Report 22299100 (Version 1)
Quarter: 2023Q2

REPORT INFORMATION
  Report Type: Report from Study
  Country: GB (occurrence: GB)
  Receive Date: 20230509
  Receipt Date: 20230509
  Transmission Date: 20230722
  Serious: Yes (Life-Threatening, Hospitalization)
  Sender: FDA-Public Use
  Company Number: GB-Global Blood Therapeutics Inc-GB-GBT-21-01749

PATIENT
  Age: 10 Year
  Sex: Male
  Weight: 34.9 kg

DRUGS (7)
  1. VOXELOTOR [Suspect]
     Active Substance: VOXELOTOR
     Indication: Sickle cell disease
     Route: 048
     Dates: start: 20200706
  2. VOXELOTOR [Suspect]
     Active Substance: VOXELOTOR
     Indication: Sickle cell disease
     Route: 048
     Dates: start: 20210523
  3. PENICILLIN V [Concomitant]
     Active Substance: PENICILLIN V
     Indication: Sickle cell disease
     Route: 048
  4. PENICILLIN V [Concomitant]
     Active Substance: PENICILLIN V
     Indication: Sickle cell disease
     Route: 048
  5. FOLIC ACID [Concomitant]
     Active Substance: FOLIC ACID
     Indication: Sickle cell disease
     Route: 048
  6. HYDROXYUREA [Concomitant]
     Active Substance: HYDROXYUREA
     Indication: Sickle cell disease
     Route: 048
     Dates: start: 20190731
  7. POLYETHYLENE GLYCOLS [Concomitant]
     Active Substance: POLYETHYLENE GLYCOLS
     Indication: Constipation
     Route: 048
     Dates: start: 20190722

REACTIONS (3)
  - Acute chest syndrome [Recovered/Resolved]
  - Hypersplenism [Recovered/Resolved]
  - Sickle cell anaemia with crisis [Recovered/Resolved]

NARRATIVE: CASE EVENT DATE: 20210523
